FAERS Safety Report 4594590-6 (Version None)
Quarter: 2005Q1

REPORT INFORMATION
  Report Type: 
  Country: None (occurrence: None)
  Receive Date: 20050301
  Receipt Date: 20040615
  Transmission Date: 20050727
  Serious: No
  Sender: FDA-Public Use
  Company Number: US-GLAXOSMITHKLINE-A0514692A

PATIENT
  Age: 53 Year
  Sex: Female

DRUGS (5)
  1. VALTREX [Suspect]
     Dosage: 1000MG THREE TIMES PER DAY
     Route: 048
     Dates: start: 20040608
  2. ESTROGEN [Concomitant]
  3. PROGESTIN INJ [Concomitant]
  4. ASPIRIN [Concomitant]
  5. EYE OINTMENT [Concomitant]

REACTIONS (2)
  - FATIGUE [None]
  - POLLAKIURIA [None]
